FAERS Safety Report 6769756-7 (Version None)
Quarter: 2010Q2

REPORT INFORMATION
  Report Type: 
  Country: None (occurrence: None)
  Receive Date: 20100615
  Receipt Date: 20100602
  Transmission Date: 20101027
  Serious: No
  Sender: FDA-Public Use
  Company Number: US-B.I. PHARMACEUTICALS,INC./RIDGEFIELD-2010-BP-06276BP

PATIENT
  Sex: Female

DRUGS (5)
  1. COMBIVENT [Suspect]
     Indication: ASTHMA
     Route: 055
     Dates: start: 20060101
  2. PULMICORT [Concomitant]
     Indication: ASTHMA
  3. NORVASC [Concomitant]
     Indication: HYPERTENSION
  4. ADVIL LIQUI-GELS [Concomitant]
     Indication: PAIN IN EXTREMITY
  5. SINGULAIR [Concomitant]
     Indication: ASTHMA

REACTIONS (2)
  - DRUG EFFECT DECREASED [None]
  - DYSPNOEA [None]
